FAERS Safety Report 6154524-X (Version None)
Quarter: 2009Q2

REPORT INFORMATION
  Report Type: 
  Country: None (occurrence: None)
  Receive Date: 20090410
  Receipt Date: 20090410
  Transmission Date: 20091009
  Serious: No
  Sender: FDA-Public Use
  Company Number: None

PATIENT
  Age: 43 Year
  Sex: Female
  Weight: 100.7 kg

DRUGS (1)
  1. HYDROXYUREA [Suspect]
     Indication: WEIGHT CONTROL
     Dosage: PO
     Route: 048
     Dates: start: 20090119, end: 20090205

REACTIONS (2)
  - DEPRESSION [None]
  - SUICIDAL IDEATION [None]
